FAERS Safety Report 6010946-9 (Version None)
Quarter: 2008Q4

REPORT INFORMATION
  Report Type: 
  Country: None (occurrence: None)
  Receive Date: 20081218
  Receipt Date: 20081211
  Transmission Date: 20090506
  Serious: Yes (Hospitalization)
  Sender: FDA-Public Use
  Company Number: A0759994A

PATIENT
  Sex: Male

DRUGS (5)
  1. AVANDIA [Suspect]
     Indication: TYPE 2 DIABETES MELLITUS
     Dosage: 8MG PER DAY
     Route: 048
     Dates: start: 20020101
  2. LANTUS [Concomitant]
  3. BENICAR [Concomitant]
  4. METFORMIN HCL [Concomitant]
  5. UNKNOWN [Concomitant]

REACTIONS (3)
  - CARDIAC DISORDER [None]
  - NEPHRECTOMY [None]
  - RENAL SURGERY [None]
